FAERS Safety Report 4513255-X (Version None)
Quarter: 2004Q4

REPORT INFORMATION
  Report Type: 
  Country: None (occurrence: None)
  Receive Date: 20041130
  Receipt Date: 20041119
  Transmission Date: 20050328
  Serious: Yes (Death, Hospitalization)
  Sender: FDA-Public Use
  Company Number: HU-ROCHE-386767

PATIENT
  Age: 55 Year
  Sex: Female

DRUGS (4)
  1. PEGASYS [Suspect]
     Dosage: STRENGTH REPORTED AS 180 MCG.
     Route: 058
     Dates: start: 20040203, end: 20040303
  2. PEGASYS [Suspect]
     Dosage: STRENGTH REPORTED AS 135 MCG.
     Route: 058
     Dates: start: 20040303, end: 20041007
  3. COPEGUS [Suspect]
     Route: 065
     Dates: start: 20040203, end: 20041007
  4. NEXIUM [Concomitant]
     Route: 065
     Dates: start: 20041004

REACTIONS (3)
  - CEREBRAL HAEMORRHAGE [None]
  - THROMBOCYTOPENIA [None]
  - WHITE BLOOD CELL COUNT DECREASED [None]
